FAERS Safety Report 19176343 (Version 1)
Quarter: 2021Q2

REPORT INFORMATION
  Report Type: Spontaneous
  Country: AT (occurrence: AT)
  Receive Date: 20210423
  Receipt Date: 20210423
  Transmission Date: 20210717
  Serious: Yes (Hospitalization, Other)
  Sender: FDA-Public Use
  Company Number: AT-EXELTIS PHARMACEUTICAL HOLDING, S.L.-2104AT00466

PATIENT
  Age: 33 Year
  Sex: Female

DRUGS (2)
  1. AREFAM [Suspect]
     Active Substance: PROGESTERONE
     Indication: ENDOMETRIOSIS
     Dosage: UNK
  2. LYNESTRENOL [Suspect]
     Active Substance: LYNESTRENOL
     Indication: ENDOMETRIOSIS
     Dosage: UNK

REACTIONS (6)
  - Dyspnoea exertional [Recovered/Resolved]
  - Dyspnoea at rest [Recovered/Resolved]
  - Lymphangioleiomyomatosis [Not Recovered/Not Resolved]
  - Palpitations [Recovered/Resolved]
  - Chest discomfort [Recovered/Resolved]
  - Lung cyst [Unknown]
